FAERS Safety Report 7367931-4 (Version None)
Quarter: 2011Q1

REPORT INFORMATION
  Report Type: 
  Country: None (occurrence: None)
  Receive Date: 20110322
  Receipt Date: 20110316
  Transmission Date: 20110831
  Serious: Yes (Life-Threatening, Hospitalization, Other)
  Sender: FDA-Public Use
  Company Number: PHFR2011GB02016

PATIENT
  Sex: Female

DRUGS (4)
  1. OLANZAPINE [Concomitant]
     Dosage: 10 MG UNK
  2. VENLAFAXINE [Concomitant]
     Indication: DEPRESSION
     Dosage: 225MG UNK
  3. CLOZAPINE [Suspect]
     Indication: PSYCHOTIC DISORDER
     Dosage: 300 MG, QD
     Route: 048
     Dates: start: 20110128, end: 20110222
  4. OMEPRAZOLE [Concomitant]
     Indication: GASTRITIS
     Dosage: 20MG UNK
     Route: 048

REACTIONS (9)
  - ISCHAEMIC HEPATITIS [None]
  - CONSTIPATION [None]
  - NAUSEA [None]
  - LIVER FUNCTION TEST ABNORMAL [None]
  - PYREXIA [None]
  - MALAISE [None]
  - HYPOTENSION [None]
  - INFLAMMATORY MARKER INCREASED [None]
  - VOMITING [None]
